FAERS Safety Report 6014767-2 (Version None)
Quarter: 2008Q4

REPORT INFORMATION
  Report Type: 
  Country: None (occurrence: None)
  Receive Date: 20081219
  Receipt Date: 20081210
  Transmission Date: 20090506
  Serious: Yes (Hospitalization)
  Sender: FDA-Public Use
  Company Number: PHHY2008JP16285

PATIENT
  Age: 8 Year
  Sex: Female

DRUGS (2)
  1. TEGRETOL [Suspect]
     Indication: EPILEPSY
     Dosage: 37.5 MG, BID
     Route: 048
     Dates: start: 20080622, end: 20080628
  2. DEPAKENE [Concomitant]
     Dosage: 200 MG, BID
     Route: 048
     Dates: start: 20080711

REACTIONS (2)
  - AFFECT LABILITY [None]
  - RASH [None]
